FAERS Safety Report 16354799 (Version 1)
Quarter: 2019Q2

REPORT INFORMATION
  Report Type: Other
  Country: US (occurrence: US)
  Receive Date: 20190524
  Receipt Date: 20190524
  Transmission Date: 20190711
  Serious: No
  Sender: FDA-Public Use
  Company Number: US-AMAG PHARMACEUTICALS, INC.-AMAG201902664

PATIENT
  Sex: Female
  Weight: 62.65 kg

DRUGS (1)
  1. MAKENA [Suspect]
     Active Substance: HYDROXYPROGESTERONE CAPROATE
     Indication: PREMATURE DELIVERY
     Dosage: 250MG/ML, WEEKLY
     Route: 058
     Dates: start: 20190307

REACTIONS (5)
  - Product administered at inappropriate site [Unknown]
  - Injection site nodule [Not Recovered/Not Resolved]
  - Limb discomfort [Unknown]
  - Rash [Not Recovered/Not Resolved]
  - Injection site pain [Unknown]
